FAERS Safety Report 19712818 (Version 1)
Quarter: 2021Q3

REPORT INFORMATION
  Report Type: Spontaneous
  Country: FR (occurrence: FR)
  Receive Date: 20210817
  Receipt Date: 20210817
  Transmission Date: 20211014
  Serious: Yes (Other)
  Sender: FDA-Public Use
  Company Number: FR-JAZZ-2021-FR-003768

PATIENT

DRUGS (4)
  1. ZEPZELCA [Suspect]
     Active Substance: LURBINECTEDIN
     Indication: SMALL CELL LUNG CANCER METASTATIC
     Dosage: 4.60 MILLIGRAM
     Dates: start: 20201202, end: 20201202
  2. ZEPZELCA [Suspect]
     Active Substance: LURBINECTEDIN
     Dosage: 4.40 MILLIGRAM
     Dates: start: 20201223, end: 20201223
  3. ZEPZELCA [Suspect]
     Active Substance: LURBINECTEDIN
     Dosage: 3.70 MILLIGRAM
     Dates: start: 20210119, end: 20210119
  4. ZEPZELCA [Suspect]
     Active Substance: LURBINECTEDIN
     Dosage: 3.70 MILLIGRAM
     Dates: start: 20210209, end: 20210209

REACTIONS (1)
  - Thrombocytopenia [Unknown]
